FAERS Safety Report 7984081-4 (Version None)
Quarter: 2011Q4

REPORT INFORMATION
  Report Type: 
  Country: None (occurrence: None)
  Receive Date: 20111216
  Receipt Date: 20111213
  Transmission Date: 20120403
  Serious: Yes (Life-Threatening)
  Sender: FDA-Public Use
  Company Number: NL-PFIZER INC-2011303825

PATIENT
  Age: 46 Year
  Sex: Male
  Weight: 103 kg

DRUGS (1)
  1. EFFEXOR XR [Suspect]
     Dosage: 75 MG, UNK
     Dates: start: 20010101

REACTIONS (4)
  - FLAT AFFECT [None]
  - SEXUAL DYSFUNCTION [None]
  - LISTLESS [None]
  - SOCIAL AVOIDANT BEHAVIOUR [None]
